FAERS Safety Report 22079889 (Version 1)
Quarter: 2023Q1

REPORT INFORMATION
  Report Type: Spontaneous
  Country: US (occurrence: US)
  Receive Date: 20230309
  Receipt Date: 20230309
  Transmission Date: 20230417
  Serious: Yes (Other)
  Sender: FDA-Public Use
  Company Number: US-AMGEN-USASP2023038953

PATIENT
  Age: 76 Year
  Sex: Female

DRUGS (2)
  1. EVENITY [Suspect]
     Active Substance: ROMOSOZUMAB-AQQG
     Indication: Osteoporosis postmenopausal
     Dosage: 210 MILLIGRAM, QMO
     Route: 065
     Dates: start: 20210203, end: 20220112
  2. EVENITY [Suspect]
     Active Substance: ROMOSOZUMAB-AQQG
     Dosage: 210 MILLIGRAM, QMO
     Route: 065
     Dates: start: 202301

REACTIONS (17)
  - Osteonecrosis [Unknown]
  - Ankle fracture [Unknown]
  - Intervertebral disc degeneration [Unknown]
  - Fall [Unknown]
  - Back pain [Unknown]
  - Arthralgia [Unknown]
  - Off label use [Unknown]
  - Tendon injury [Unknown]
  - Lipoatrophy [Unknown]
  - Muscle oedema [Unknown]
  - Greater trochanteric pain syndrome [Unknown]
  - Bone marrow oedema [Unknown]
  - Facet joint syndrome [Unknown]
  - Spondylolisthesis [Unknown]
  - Spinal stenosis [Unknown]
  - Bursal fluid accumulation [Unknown]
  - Bursitis [Unknown]

NARRATIVE: CASE EVENT DATE: 20220101
